FAERS Safety Report 4557281-3 (Version None)
Quarter: 2005Q1

REPORT INFORMATION
  Report Type: 
  Country: None (occurrence: None)
  Receive Date: 20050118
  Receipt Date: 20041228
  Transmission Date: 20050727
  Serious: Yes (Death, Hospitalization)
  Sender: FDA-Public Use
  Company Number: 2004US001552

PATIENT
  Age: 85 Year
  Sex: Male

DRUGS (5)
  1. AMBISOME [Suspect]
     Indication: SEPSIS
     Dosage: 5.00 MG/KG, UID/QD, INTRAVENOUS
     Route: 042
     Dates: start: 20041201, end: 20041202
  2. ROCEPHIN [Concomitant]
  3. FLAGYL (METRONIDAZLE BENZOATE) [Concomitant]
  4. UNSPECIFIED ANTI-HYPERTENSIVE [Concomitant]
  5. UNSPECIFIED ANTI-DIABETIC TREATMENT [Concomitant]

REACTIONS (2)
  - PNEUMONIA [None]
  - SEPSIS [None]
